FAERS Safety Report 15591096 (Version 1)
Quarter: 2018Q4

REPORT INFORMATION
  Report Type: Report from Study
  Country: US (occurrence: US)
  Receive Date: 20181106
  Receipt Date: 20181106
  Transmission Date: 20190205
  Serious: Yes (Hospitalization, Other)
  Sender: FDA-Public Use
  Company Number: US-EXELIXIS-CABO-18015901

PATIENT
  Sex: Male

DRUGS (1)
  1. CABOMETYX [Suspect]
     Active Substance: CABOZANTINIB S-MALATE
     Indication: RENAL CANCER
     Dosage: 60 MG, QD (MORNING, WITHOUT FOOD)
     Dates: start: 20180825, end: 2018

REACTIONS (6)
  - Back disorder [Unknown]
  - Blood sodium decreased [Unknown]
  - Constipation [Recovering/Resolving]
  - Stomatitis [Recovering/Resolving]
  - Pain [Unknown]
  - Dyspnoea [Unknown]

NARRATIVE: CASE EVENT DATE: 2018
